FAERS Safety Report 6031566-6 (Version None)
Quarter: 2009Q1

REPORT INFORMATION
  Report Type: 
  Country: None (occurrence: None)
  Receive Date: 20090108
  Receipt Date: 20081226
  Transmission Date: 20090719
  Serious: Yes (Hospitalization, Other)
  Sender: FDA-Public Use
  Company Number: JP-BAYER-200812202BYL

PATIENT
  Age: 76 Year
  Sex: Male
  Weight: 55 kg

DRUGS (15)
  1. NEXAVAR [Suspect]
     Indication: RENAL CELL CARCINOMA STAGE IV
     Dosage: TOTAL DAILY DOSE: 800 MG  UNIT DOSE: 200 MG
     Route: 048
     Dates: start: 20080626, end: 20080703
  2. NEXAVAR [Interacting]
     Dosage: UNIT DOSE: 200 MG
     Route: 048
     Dates: start: 20080715, end: 20080918
  3. NEXAVAR [Interacting]
     Dosage: UNIT DOSE: 200 MG
     Route: 048
     Dates: start: 20081028, end: 20081105
  4. NEXAVAR [Interacting]
     Dosage: UNIT DOSE: 200 MG
     Route: 048
     Dates: start: 20081010, end: 20081014
  5. ISCOTIN [Interacting]
     Indication: TUBERCULOSIS
     Dosage: AS USED: 300 MG
     Route: 048
     Dates: start: 20080918
  6. PYRAZINAMIDE [Interacting]
     Indication: TUBERCULOSIS
     Dosage: AS USED: 1 G
     Route: 048
     Dates: start: 20080918, end: 20081118
  7. ETHAMBUTOL HCL [Interacting]
     Indication: TUBERCULOSIS
     Dosage: AS USED: 750 MG
     Route: 048
     Dates: start: 20080918, end: 20081106
  8. EVIPROSTAT [Concomitant]
     Route: 048
     Dates: start: 20070109, end: 20080724
  9. TAKEPRON [Concomitant]
     Indication: PROPHYLAXIS AGAINST GASTROINTESTINAL ULCER
     Route: 048
     Dates: start: 20080216
  10. DEPAKENE [Concomitant]
     Route: 048
     Dates: start: 20080215
  11. DEPAKENE [Concomitant]
     Route: 048
     Dates: start: 20080918
  12. BUP-4 [Concomitant]
     Route: 048
     Dates: start: 20070109, end: 20080724
  13. STOMILASE [Concomitant]
     Route: 048
     Dates: start: 20080418, end: 20080724
  14. BLOPRESS [Concomitant]
     Dosage: AS USED: 4 MG
     Route: 048
     Dates: start: 20080918
  15. PYDOXAL [Concomitant]
     Dosage: AS USED: 30 MG
     Route: 048
     Dates: start: 20080918

REACTIONS (4)
  - CONSTIPATION [None]
  - LIVER DISORDER [None]
  - PALMAR-PLANTAR ERYTHRODYSAESTHESIA SYNDROME [None]
  - TUBERCULOSIS [None]
